FAERS Safety Report 15586728 (Version 1)
Quarter: 2018Q4

REPORT INFORMATION
  Report Type: Spontaneous
  Country: US (occurrence: US)
  Receive Date: 20181101
  Receipt Date: 20181101
  Transmission Date: 20190205
  Serious: Yes (Life-Threatening, Other)
  Sender: FDA-Public Use
  Company Number: None

PATIENT
  Age: 55 Year
  Sex: Female
  Weight: 80.74 kg

DRUGS (8)
  1. LOSARTAN. [Concomitant]
     Active Substance: LOSARTAN
  2. HCTZ [Concomitant]
     Active Substance: HYDROCHLOROTHIAZIDE
  3. APTIOM [Suspect]
     Active Substance: ESLICARBAZEPINE ACETATE
     Indication: EPILEPSY
     Dosage: ?          QUANTITY:1 PILL;?
     Route: 048
     Dates: start: 20170531, end: 201809
  4. ZYRTEX [Concomitant]
  5. ALEVE [Concomitant]
     Active Substance: NAPROXEN SODIUM
  6. AMLODOPINE [Concomitant]
     Active Substance: AMLODIPINE BESYLATE
  7. AETNELOL [Concomitant]
  8. ADVIL [Concomitant]
     Active Substance: IBUPROFEN

REACTIONS (2)
  - Blood chloride abnormal [None]
  - Blood sodium decreased [None]

NARRATIVE: CASE EVENT DATE: 201805
